FAERS Safety Report 9282362 (Version 2)
Quarter: 2013Q4

REPORT INFORMATION
  Report Type: Spontaneous
  Country: US (occurrence: US)
  Receive Date: 20130510
  Receipt Date: 20131030
  Transmission Date: 20140711
  Serious: Yes (Hospitalization, Other)
  Sender: FDA-Public Use
  Company Number: US-BAYER-2013-056107

PATIENT
  Age: 41 Year
  Sex: Female
  Weight: 65.76 kg

DRUGS (3)
  1. MIRENA [Suspect]
     Indication: CONTRACEPTION
     Dosage: 20 MCG/24HR, CONT
     Route: 015
     Dates: start: 20080207, end: 20080307
  2. COZAAR [Concomitant]
     Dosage: 50 MG, UNK
     Route: 048
  3. SYNTHROID [Concomitant]
     Route: 048

REACTIONS (6)
  - Uterine perforation [None]
  - Device dislocation [None]
  - Post procedural discomfort [None]
  - Procedural haemorrhage [None]
  - Abdominal pain lower [None]
  - Injury [None]
